FAERS Safety Report 5238463-4 (Version None)
Quarter: 2007Q1

REPORT INFORMATION
  Report Type: 
  Country: None (occurrence: None)
  Receive Date: 20070215
  Receipt Date: 20070205
  Transmission Date: 20070707
  Serious: Yes (Hospitalization)
  Sender: FDA-Public Use
  Company Number: FR-BRISTOL-MYERS SQUIBB COMPANY-13673785

PATIENT
  Age: 59 Year
  Sex: Male
  Weight: 50 kg

DRUGS (8)
  1. SUSTIVA [Suspect]
     Indication: HIV INFECTION
     Route: 048
     Dates: start: 20060831
  2. TRUVADA [Suspect]
     Indication: HIV INFECTION
     Dates: start: 20060831
  3. ZECLAR [Concomitant]
     Indication: ATYPICAL MYCOBACTERIAL INFECTION
     Dates: start: 20060728
  4. RIFINAH [Concomitant]
     Dates: start: 20061025
  5. MYAMBUTOL [Concomitant]
     Indication: ATYPICAL MYCOBACTERIAL INFECTION
     Dates: start: 20060720
  6. VALACYCLOVIR HCL [Concomitant]
     Indication: ANTIVIRAL PROPHYLAXIS
     Dates: start: 20060716
  7. HYDROCORTISONE [Concomitant]
     Dates: start: 20061127
  8. BACTRIM [Concomitant]
     Indication: ANTIFUNGAL PROPHYLAXIS
     Dates: start: 20060707

REACTIONS (2)
  - LYMPHADENITIS [None]
  - PYREXIA [None]
